FAERS Safety Report 8554531-3 (Version None)
Quarter: 2012Q3

REPORT INFORMATION
  Report Type: 
  Country: None (occurrence: None)
  Receive Date: 20120731
  Receipt Date: 20120721
  Transmission Date: 20120928
  Serious: Yes (Other)
  Sender: FDA-Public Use
  Company Number: US-BRISTOL-MYERS SQUIBB COMPANY-16769754

PATIENT
  Age: 65 Year
  Sex: Female
  Weight: 83 kg

DRUGS (1)
  1. IPILIMUMAB [Suspect]
     Indication: MALIGNANT MELANOMA
     Dosage: LAST DOSE ON 20JUN2012,RESUMED ON 18JUL2012
     Route: 042
     Dates: start: 20120620

REACTIONS (2)
  - HYPOCALCAEMIA [None]
  - LIPASE INCREASED [None]
